FAERS Safety Report 9244800 (Version 1)
Quarter: 2013Q1

REPORT INFORMATION
  Report Type: Spontaneous
  Country: US (occurrence: None)
  Receive Date: 20121130
  Receipt Date: 20121130
  Transmission Date: 20140127
  Serious: Yes (Other)
  Sender: FDA-Public Use
  Company Number: PHHY2012US081343

PATIENT
  Age: 66 Year
  Sex: Male

DRUGS (5)
  1. LAMISIL [Suspect]
     Indication: ONYCHOMYCOSIS
     Route: 048
     Dates: start: 19960719
  2. PROCARDIA (NIFEDIPINE) [Concomitant]
  3. ASA (ACETYLSALICYLIC ACID) [Concomitant]
  4. ASPIRIN (ACETYLSALICYLIC ACID) [Concomitant]
  5. CARDURA (DOXAZOSIN MESILATE) [Concomitant]

REACTIONS (4)
  - Hepatitis [None]
  - Rash [None]
  - Aspartate aminotransferase increased [None]
  - Pyrexia [None]
